FAERS Safety Report 12016312 (Version 1)
Quarter: 2016Q1

REPORT INFORMATION
  Report Type: Spontaneous
  Country: US (occurrence: US)
  Receive Date: 20160205
  Receipt Date: 20160205
  Transmission Date: 20160526
  Serious: No
  Sender: FDA-Public Use
  Company Number: US-AMGEN-USASP2015119999

PATIENT
  Age: 64 Year
  Sex: Female

DRUGS (2)
  1. 5-FU                               /00098801/ [Concomitant]
     Active Substance: FLUOROURACIL
     Dosage: UNK
  2. NEULASTA [Suspect]
     Active Substance: PEGFILGRASTIM
     Indication: PRODUCT USED FOR UNKNOWN INDICATION
     Dosage: UNK UNK, 24 HOURS AFTER CHEMO
     Route: 065

REACTIONS (7)
  - Abdominal pain lower [Unknown]
  - Paraesthesia oral [Unknown]
  - Tongue disorder [Unknown]
  - White blood cell count increased [Unknown]
  - Hypoaesthesia oral [Unknown]
  - Inappropriate schedule of drug administration [Unknown]
  - Blood pressure increased [Unknown]
